FAERS Safety Report 8108086-8 (Version None)
Quarter: 2012Q1

REPORT INFORMATION
  Report Type: 
  Country: None (occurrence: None)
  Receive Date: 20120202
  Receipt Date: 20120130
  Transmission Date: 20120608
  Serious: Yes (Life-Threatening, Hospitalization)
  Sender: FDA-Public Use
  Company Number: JO-PFIZER INC-2012024115

PATIENT
  Age: 14 Year
  Sex: Female

DRUGS (2)
  1. ADVIL COLD AND SINUS [Suspect]
     Indication: INFLUENZA
  2. ADVIL COLD AND SINUS [Suspect]
     Indication: NASOPHARYNGITIS
     Dosage: 1 CAPLET EVERY 12 HOURS
     Route: 048
     Dates: start: 20111227, end: 20111229

REACTIONS (3)
  - HYPERSENSITIVITY [None]
  - DYSPNOEA [None]
  - SWELLING [None]
